FAERS Safety Report 18152058 (Version 1)
Quarter: 2020Q3

REPORT INFORMATION
  Report Type: Spontaneous
  Country: IT (occurrence: IT)
  Receive Date: 20200814
  Receipt Date: 20200814
  Transmission Date: 20201103
  Serious: Yes (Hospitalization)
  Sender: FDA-Public Use
  Company Number: IT-PFIZER INC-2020313778

PATIENT
  Age: 58 Year
  Sex: Female

DRUGS (1)
  1. LORAZEPAM. [Suspect]
     Active Substance: LORAZEPAM
     Dosage: 7 DROP, 1X/DAY (2 MG/ML, AS REPORTED)
     Route: 048
     Dates: start: 20200729, end: 20200729

REACTIONS (2)
  - Vertigo [Recovering/Resolving]
  - Head titubation [Unknown]

NARRATIVE: CASE EVENT DATE: 20200729
